FAERS Safety Report 8633216 (Version 2)
Quarter: 2013Q1

REPORT INFORMATION
  Report Type: Report from Study
  Country: DE (occurrence: DE)
  Receive Date: 20120625
  Receipt Date: 20130318
  Transmission Date: 20140127
  Serious: Yes (Death, Other)
  Sender: FDA-Public Use
  Company Number: DE-ACTELION-A-US2012-67531

PATIENT
  Age: 74 Year
  Sex: Male

DRUGS (1)
  1. VENTAVIS [Suspect]
     Indication: PULMONARY ARTERIAL HYPERTENSION
     Dosage: 5 MCG X 6 TIMES/DAY
     Route: 055
     Dates: start: 20120606

REACTIONS (5)
  - Death [Fatal]
  - Circulatory collapse [Not Recovered/Not Resolved]
  - Dyspnoea [Not Recovered/Not Resolved]
  - Dizziness [Not Recovered/Not Resolved]
  - Cyanosis [Not Recovered/Not Resolved]
